FAERS Safety Report 15424599 (Version 1)
Quarter: 2018Q3

REPORT INFORMATION
  Report Type: Spontaneous
  Country: US (occurrence: US)
  Receive Date: 20180917
  Receipt Date: 20180917
  Transmission Date: 20181010
  Serious: Yes (Other)
  Sender: FDA-Public Use
  Company Number: None

PATIENT
  Age: 54 Year
  Sex: Male

DRUGS (5)
  1. LISINOPRIL. [Concomitant]
     Active Substance: LISINOPRIL
  2. XALKORI [Suspect]
     Active Substance: CRIZOTINIB
     Indication: LUNG NEOPLASM MALIGNANT
     Route: 048
     Dates: start: 201512
  3. HUMULIN NOS [Concomitant]
     Active Substance: INSULIN HUMAN
  4. ELIQUIS [Concomitant]
     Active Substance: APIXABAN
  5. HARVONI [Concomitant]
     Active Substance: LEDIPASVIR\SOFOSBUVIR

REACTIONS (1)
  - Tibia fracture [None]

NARRATIVE: CASE EVENT DATE: 201809
